FAERS Safety Report 8913347 (Version 1)
Quarter: 2012Q4

REPORT INFORMATION
  Report Type: Spontaneous
  Country: JP (occurrence: None)
  Receive Date: 20121113
  Receipt Date: 20121113
  Transmission Date: 20130627
  Serious: Yes (Other)
  Sender: FDA-Public Use
  Company Number: DSA_60820_2012

PATIENT

DRUGS (5)
  1. FLUOROURACIL [Suspect]
     Indication: COLORECTAL CANCER
     Dosage: 400 mg/m2 every other week intravenous (not otherwise specified)
     Route: 042
  2. FLUOROURACIL [Suspect]
     Indication: COLORECTAL CANCER
     Dosage: 2400 MG/M2 over 46 hours; every other week intravenous (not otherwisde specified)
     Route: 042
  3. IRINOTECAN [Suspect]
     Indication: COLORECTAL CANCER
  4. LEUCOVORIN /00566701/ [Suspect]
     Indication: COLORECTAL CANCER
  5. BEVACIZUMAB [Suspect]
     Indication: COLORECTAL CANCER

REACTIONS (1)
  - Gastrointestinal perforation [None]
